FAERS Safety Report 13601954 (Version 2)
Quarter: 2017Q2

REPORT INFORMATION
  Report Type: Spontaneous
  Country: AR (occurrence: AR)
  Receive Date: 20170601
  Receipt Date: 20170602
  Transmission Date: 20170830
  Serious: No
  Sender: FDA-Public Use
  Company Number: AR-PFIZER INC-2017235550

PATIENT
  Age: 71 Year
  Sex: Male

DRUGS (2)
  1. INLYTA [Suspect]
     Active Substance: AXITINIB
     Indication: RENAL CELL CARCINOMA
     Dosage: UNK
  2. SUTENT [Suspect]
     Active Substance: SUNITINIB MALATE
     Indication: RENAL CELL CARCINOMA
     Dosage: UNK

REACTIONS (7)
  - Tooth disorder [Recovering/Resolving]
  - Neoplasm progression [Unknown]
  - Gait disturbance [Unknown]
  - Visual impairment [Unknown]
  - Fall [Unknown]
  - Discomfort [Unknown]
  - Nervousness [Unknown]

NARRATIVE: CASE EVENT DATE: 201705
